FAERS Safety Report 7496335-9 (Version None)
Quarter: 2011Q2

REPORT INFORMATION
  Report Type: 
  Country: None (occurrence: None)
  Receive Date: 20110523
  Receipt Date: 20110511
  Transmission Date: 20111010
  Serious: Yes (Other)
  Sender: FDA-Public Use
  Company Number: GR-ELI_LILLY_AND_COMPANY-GR201105003665

PATIENT

DRUGS (9)
  1. FOLIC ACID [Concomitant]
  2. MANNITOL [Concomitant]
  3. CISPLATIN [Concomitant]
     Indication: MESOTHELIOMA MALIGNANT
     Dosage: 75 MG/KG, UNKNOWN
  4. VITAMIN B-12 [Concomitant]
  5. POTASSIUM CHLORIDE [Concomitant]
  6. MAGNESIUM [Concomitant]
  7. DEXAMETHASONE [Concomitant]
     Indication: PROPHYLAXIS
  8. PEMETREXED [Suspect]
     Indication: MESOTHELIOMA MALIGNANT
     Dosage: 500 MG/M2, EVERY 3 WEEKS
  9. ANTIEMETICS AND ANTINAUSEANTS [Concomitant]

REACTIONS (3)
  - THROMBOCYTOPENIA [None]
  - HYPOKALAEMIA [None]
  - ANAEMIA [None]
